FAERS Safety Report 4314131-8 (Version None)
Quarter: 2004Q1

REPORT INFORMATION
  Report Type: 
  Country: None (occurrence: None)
  Receive Date: 20040308
  Receipt Date: 20040308
  Transmission Date: 20041129
  Serious: Yes (Hospitalization)
  Sender: FDA-Public Use
  Company Number: None

PATIENT
  Sex: Male
  Weight: 84 kg

DRUGS (20)
  1. VANCOMYCIN [Suspect]
     Indication: CELLULITIS
     Dosage: 1000MG BID INTRAVENOUS
     Route: 042
     Dates: start: 20031120, end: 20031129
  2. VANCOMYCIN [Suspect]
     Indication: OSTEOMYELITIS
     Dosage: 1000MG BID INTRAVENOUS
     Route: 042
     Dates: start: 20031120, end: 20031129
  3. INSULIN [Concomitant]
  4. METOPROLOL [Concomitant]
  5. AMLODIPINE [Concomitant]
  6. ATORVASTATIN [Concomitant]
  7. DIPHENHYDRAMINE HCL [Concomitant]
  8. COMBIVENT [Concomitant]
  9. MILK OF MAGNESIA TAB [Concomitant]
  10. DOCUSATE [Concomitant]
  11. GEMFIBROZIL [Concomitant]
  12. ALBUTEROL [Concomitant]
  13. TAMSULOSIN [Concomitant]
  14. FINASTERIDE [Concomitant]
  15. BISACODYL [Concomitant]
  16. ACETAMINOPHEN [Concomitant]
  17. LEVAQUIN [Concomitant]
  18. ACCUZYME [Concomitant]
  19. . [Concomitant]
  20. HYDROXYZINE [Concomitant]

REACTIONS (2)
  - DRUG LEVEL INCREASED [None]
  - NEPHRITIS INTERSTITIAL [None]
